FAERS Safety Report 9476725 (Version 2)
Quarter: 2013Q3

REPORT INFORMATION
  Report Type: Spontaneous
  Country: US (occurrence: US)
  Receive Date: 20130826
  Receipt Date: 20130826
  Transmission Date: 20140515
  Serious: No
  Sender: FDA-Public Use
  Company Number: US-BRISTOL-MYERS SQUIBB COMPANY-17178682

PATIENT
  Age: 56 Year
  Sex: Female

DRUGS (2)
  1. KENALOG-40 INJ [Suspect]
     Dosage: ONE INJ.
     Dates: start: 20121005
  2. PREVACID [Concomitant]

REACTIONS (2)
  - Swelling face [Unknown]
  - Anxiety [Recovered/Resolved]
